FAERS Safety Report 4391276-8 (Version None)
Quarter: 2004Q2

REPORT INFORMATION
  Report Type: 
  Country: None (occurrence: None)
  Receive Date: 20040621
  Receipt Date: 20040115
  Transmission Date: 20050107
  Serious: Yes (Other)
  Sender: FDA-Public Use
  Company Number: USA-2003-0004938

PATIENT
  Age: 43 Year
  Sex: Male

DRUGS (9)
  1. OXYCONTIN [Suspect]
     Indication: PAIN
     Dosage: 0 MG
     Dates: start: 20000101
  2. MS CONTIN [Concomitant]
  3. LORCET-HD [Concomitant]
  4. NEURONTIN [Concomitant]
  5. FLEXERIL [Concomitant]
  6. DYAZIDE [Concomitant]
  7. BACLOFEN [Concomitant]
  8. SOMA [Concomitant]
  9. CLARITIN-D [Concomitant]

REACTIONS (16)
  - ANXIETY [None]
  - BACK PAIN [None]
  - BURNING SENSATION [None]
  - DEPRESSION [None]
  - DRUG DEPENDENCE [None]
  - DRUG WITHDRAWAL SYNDROME [None]
  - ERYTHEMA [None]
  - FLANK PAIN [None]
  - HYPOAESTHESIA [None]
  - MUSCLE SPASMS [None]
  - NODULE [None]
  - OEDEMA [None]
  - PAIN [None]
  - PAIN IN EXTREMITY [None]
  - SLEEP DISORDER [None]
  - URINE ANALYSIS ABNORMAL [None]
